FAERS Safety Report 5401754-8 (Version None)
Quarter: 2007Q3

REPORT INFORMATION
  Report Type: 
  Country: None (occurrence: None)
  Receive Date: 20070731
  Receipt Date: 20070723
  Transmission Date: 20080115
  Serious: Yes (Hospitalization)
  Sender: FDA-Public Use
  Company Number: US-AMGEN-US235547

PATIENT
  Sex: Female

DRUGS (2)
  1. ENBREL [Suspect]
     Indication: RHEUMATOID ARTHRITIS
     Route: 058
     Dates: start: 20031220
  2. METHOTREXATE SODIUM [Concomitant]
     Dates: start: 19900101

REACTIONS (3)
  - CARTILAGE INJURY [None]
  - COUGH [None]
  - DYSPHONIA [None]
